FAERS Safety Report 7897217-0 (Version None)
Quarter: 2011Q4

REPORT INFORMATION
  Report Type: 
  Country: None (occurrence: None)
  Receive Date: 20111107
  Receipt Date: 20111103
  Transmission Date: 20120403
  Serious: Yes (Hospitalization)
  Sender: FDA-Public Use
  Company Number: US-BAYER-2011-064922

PATIENT
  Age: 74 Year
  Sex: Male

DRUGS (7)
  1. LASIX [Concomitant]
  2. ALDACTONE [Concomitant]
     Dosage: 25 MG, BID
  3. XANAX [Concomitant]
     Indication: ANXIETY
     Dosage: 0.5 MG, TID
  4. SORAFENIB (RAF KINASE INHIBITOR) [Suspect]
     Indication: HEPATIC NEOPLASM MALIGNANT
     Dosage: 400 MG, BID
     Route: 048
     Dates: start: 20110526, end: 20110713
  5. SORAFENIB (RAF KINASE INHIBITOR) [Suspect]
     Dosage: 200 MG, BID
  6. OXYCODONE [Concomitant]
  7. ZANTAC [Concomitant]
     Dosage: 300 MG, QD

REACTIONS (1)
  - PULMONARY EMBOLISM [None]
